FAERS Safety Report 8586336 (Version 3)
Quarter: 2015Q1

REPORT INFORMATION
  Report Type: Report from Study
  Country: US (occurrence: US)
  Receive Date: 20120530
  Receipt Date: 20150318
  Transmission Date: 20150721
  Serious: Yes (Other)
  Sender: FDA-Public Use
  Company Number: US-ELI_LILLY_AND_COMPANY-US201205008080

PATIENT
  Sex: Female

DRUGS (1)
  1. SOMATROPIN [Suspect]
     Active Substance: SOMATROPIN
     Indication: PRODUCT USED FOR UNKNOWN INDICATION
     Dosage: 0.4 MG, QD
     Route: 065
     Dates: start: 2008

REACTIONS (12)
  - Intervertebral disc protrusion [Unknown]
  - Presyncope [Unknown]
  - Exostosis [Unknown]
  - Drug dose omission [Unknown]
  - Large intestine polyp [Unknown]
  - Abdominal discomfort [Unknown]
  - Addison^s disease [Unknown]
  - Varicose vein [Unknown]
  - Iron deficiency anaemia [Unknown]
  - Pulmonary artery dilatation [Unknown]
  - Fatigue [Unknown]
  - Chronic kidney disease [Unknown]

NARRATIVE: CASE EVENT DATE: 2010
